FAERS Safety Report 7314937-7 (Version None)
Quarter: 2011Q1

REPORT INFORMATION
  Report Type: 
  Country: None (occurrence: None)
  Receive Date: 20110225
  Receipt Date: 20100315
  Transmission Date: 20110831
  Serious: No
  Sender: FDA-Public Use
  Company Number: US-MYLANLABS-2010S1002227

PATIENT
  Age: 16 Year
  Sex: Male
  Weight: 92.08 kg

DRUGS (2)
  1. AMNESTEEM [Suspect]
     Indication: ACNE
     Route: 048
  2. CLARAVIS [Suspect]
     Indication: ACNE
     Route: 048

REACTIONS (7)
  - HEPATIC ENZYME INCREASED [None]
  - AGGRESSION [None]
  - DECREASED APPETITE [None]
  - DISTURBANCE IN ATTENTION [None]
  - DEPRESSION [None]
  - IRRITABILITY [None]
  - DECREASED INTEREST [None]
